FAERS Safety Report 7119425-9 (Version None)
Quarter: 2010Q4

REPORT INFORMATION
  Report Type: 
  Country: None (occurrence: None)
  Receive Date: 20101027
  Receipt Date: 20100616
  Transmission Date: 20110411
  Serious: Yes (Hospitalization)
  Sender: FDA-Public Use
  Company Number: 007480

PATIENT
  Sex: Male

DRUGS (5)
  1. ISOSORBIDE DINITRATE [Suspect]
     Indication: CARDIAC FAILURE CONGESTIVE
     Dosage: (30 MG ORAL)
     Route: 048
     Dates: start: 20021112
  2. FRUSEMIDE /00032601/ [Suspect]
     Indication: CARDIAC FAILURE CONGESTIVE
     Dosage: (20 MG ORAL)
     Route: 048
     Dates: start: 20000102
  3. NITROGLYCERIN [Suspect]
     Indication: CHEST PAIN
     Dosage: (0.4 MG SUBLINGUAL)
     Route: 060
     Dates: start: 20000120
  4. STUDY DRUG (INVESTIGATIONAL DRUG) [Suspect]
     Indication: INFLUENZA
     Dosage: (INTRAMUSCULAR)
     Route: 030
     Dates: start: 20081017, end: 20081017
  5. FLUZONE /00027001/ [Concomitant]

REACTIONS (2)
  - DIZZINESS [None]
  - HEADACHE [None]
